FAERS Safety Report 24002259 (Version 1)
Quarter: 2024Q2

REPORT INFORMATION
  Report Type: Report from Study
  Country: CA (occurrence: CA)
  Receive Date: 20240622
  Receipt Date: 20240622
  Transmission Date: 20240715
  Serious: Yes (Hospitalization)
  Sender: FDA-Public Use
  Company Number: CA-ABBVIE-5806914

PATIENT
  Age: 34 Year
  Sex: Male

DRUGS (2)
  1. SKYRIZI [Suspect]
     Active Substance: RISANKIZUMAB-RZAA
     Indication: Crohn^s disease
     Route: 058
     Dates: start: 20230907
  2. SKYRIZI [Suspect]
     Active Substance: RISANKIZUMAB-RZAA
     Route: 058
     Dates: start: 20240525

REACTIONS (6)
  - Gastrointestinal ulcer [Not Recovered/Not Resolved]
  - Frequent bowel movements [Unknown]
  - Arthralgia [Unknown]
  - Drug ineffective [Unknown]
  - Food intolerance [Unknown]
  - Weight decreased [Unknown]

NARRATIVE: CASE EVENT DATE: 20240501
